FAERS Safety Report 17789982 (Version 1)
Quarter: 2020Q2

REPORT INFORMATION
  Report Type: Spontaneous
  Country: US (occurrence: US)
  Receive Date: 20200513
  Receipt Date: 20200513
  Transmission Date: 20200714
  Serious: Yes (Hospitalization)
  Sender: FDA-Public Use
  Company Number: None

PATIENT
  Age: 75 Year
  Sex: Male
  Weight: 91 kg

DRUGS (2)
  1. RIVAROXABAN (RIVAROXABAN 15MG TAB) [Suspect]
     Active Substance: RIVAROXABAN
     Indication: ATRIAL FIBRILLATION
     Route: 048
     Dates: start: 20171128, end: 20191005
  2. ASPIRIN (ASPIRIN 500MG TAB) [Suspect]
     Active Substance: ASPIRIN
     Indication: CEREBROVASCULAR ACCIDENT
     Route: 048
     Dates: start: 20130627, end: 20191008

REACTIONS (4)
  - Gastrointestinal haemorrhage [None]
  - Dyspnoea [None]
  - Haemoglobin decreased [None]
  - Haemoptysis [None]

NARRATIVE: CASE EVENT DATE: 20191008
